FAERS Safety Report 7502432-1 (Version None)
Quarter: 2011Q2

REPORT INFORMATION
  Report Type: 
  Country: None (occurrence: None)
  Receive Date: 20110525
  Receipt Date: 20110518
  Transmission Date: 20111010
  Serious: Yes (Hospitalization)
  Sender: FDA-Public Use
  Company Number: FR-PFIZER INC-2011106200

PATIENT
  Age: 45 Year
  Sex: Female

DRUGS (2)
  1. ZYVOX [Suspect]
     Indication: NECROTISING FASCIITIS
     Route: 048
  2. FLAGYL [Concomitant]
     Indication: NECROTISING FASCIITIS

REACTIONS (2)
  - HYPERTENSION [None]
  - AGITATION [None]
